FAERS Safety Report 8269184-1 (Version None)
Quarter: 2012Q2

REPORT INFORMATION
  Report Type: 
  Country: None (occurrence: None)
  Receive Date: 20120409
  Receipt Date: 20120326
  Transmission Date: 20120825
  Serious: Yes (Other)
  Sender: FDA-Public Use
  Company Number: CHPA2012US005854

PATIENT
  Age: 63 Year
  Sex: Female

DRUGS (1)
  1. BENEFIBER W/ WHEAT DEXTRIN [Suspect]
     Indication: NUTRITIONAL SUPPORT
     Dosage: 2 TSP, QHS
     Route: 048
     Dates: start: 20101001

REACTIONS (4)
  - DISORIENTATION [None]
  - WEIGHT DECREASED [None]
  - HEADACHE [None]
  - DIZZINESS [None]
